FAERS Safety Report 5336372-3 (Version None)
Quarter: 2007Q2

REPORT INFORMATION
  Report Type: 
  Country: None (occurrence: None)
  Receive Date: 20070529
  Receipt Date: 20070522
  Transmission Date: 20071010
  Serious: Yes (Hospitalization)
  Sender: FDA-Public Use
  Company Number: GBWYE157603JUN03

PATIENT
  Sex: Male
  Weight: 80.6 kg

DRUGS (8)
  1. RAPAMUNE [Suspect]
     Indication: IMMUNOSUPPRESSANT DRUG THERAPY
     Route: 048
     Dates: start: 20021111
  2. ATENOLOL [Concomitant]
     Indication: HYPERTENSION
     Dates: start: 20010409
  3. AZATHIOPRINE [Concomitant]
  4. OMEPRAZOLE [Concomitant]
     Indication: OESOPHAGITIS
     Dates: start: 19980907
  5. DOXAZOSIN MESYLATE [Concomitant]
     Indication: HYPERTENSION
     Dates: start: 19980527
  6. PREDNISOLONE [Concomitant]
  7. RAMIPRIL [Concomitant]
     Indication: HYPERTENSION
     Dates: start: 20020520
  8. ATORVASTATIN [Concomitant]
     Indication: HYPERCHOLESTEROLAEMIA
     Dates: start: 20010219

REACTIONS (4)
  - BLOOD CREATININE INCREASED [None]
  - BLOOD UREA INCREASED [None]
  - HAEMOGLOBIN DECREASED [None]
  - PERINEPHRIC COLLECTION [None]
